FAERS Safety Report 4921060-5 (Version None)
Quarter: 2006Q1

REPORT INFORMATION
  Report Type: 
  Country: None (occurrence: None)
  Receive Date: 20060223
  Receipt Date: 20051117
  Transmission Date: 20060701
  Serious: Yes (Hospitalization, Disabling)
  Sender: FDA-Public Use
  Company Number: US-MERCK-0511USA03156

PATIENT
  Age: 45 Year
  Sex: Female
  Weight: 51 kg

DRUGS (3)
  1. VIOXX [Suspect]
     Indication: MUSCULOSKELETAL PAIN
     Route: 048
     Dates: start: 19990101, end: 20040901
  2. VIOXX [Suspect]
     Route: 048
     Dates: start: 19990101, end: 20040901
  3. INSULIN [Concomitant]
     Indication: DIABETES MELLITUS
     Route: 058

REACTIONS (20)
  - ABDOMINAL PAIN [None]
  - ACUTE RESPIRATORY FAILURE [None]
  - BLOOD TRIGLYCERIDES INCREASED [None]
  - CHOLECYSTITIS ACUTE [None]
  - DEHYDRATION [None]
  - DEPRESSION [None]
  - DIABETIC KETOACIDOSIS [None]
  - DYSPEPSIA [None]
  - FALL [None]
  - GASTRITIS [None]
  - GASTROINTESTINAL DISORDER [None]
  - HYPOTHERMIA [None]
  - HYPOVOLAEMIA [None]
  - MAJOR DEPRESSION [None]
  - METABOLIC ACIDOSIS [None]
  - MYOCARDIAL INFARCTION [None]
  - PANIC DISORDER [None]
  - PNEUMONIA [None]
  - RENAL DISORDER [None]
  - VOMITING [None]
